FAERS Safety Report 8961258 (Version 2)
Quarter: 2013Q1

REPORT INFORMATION
  Report Type: Spontaneous
  Country: US (occurrence: US)
  Receive Date: 20121212
  Receipt Date: 20130312
  Transmission Date: 20140127
  Serious: Yes (Hospitalization)
  Sender: FDA-Public Use
  Company Number: US-B.I. PHARMACEUTICALS,INC./RIDGEFIELD-2012-BP-26566BP

PATIENT
  Age: 73 Year
  Sex: Male

DRUGS (18)
  1. PRADAXA [Suspect]
     Dosage: 75 MG
     Dates: start: 20120510
  2. SAXAGLIPTIN [Suspect]
     Indication: TYPE 2 DIABETES MELLITUS
     Dates: start: 20101109
  3. METFORMIN HCL [Suspect]
     Indication: TYPE 2 DIABETES MELLITUS
     Dosage: 2000 MG
  4. GLIMEPIRIDE [Suspect]
     Indication: TYPE 2 DIABETES MELLITUS
     Dosage: 2 MG
     Dates: start: 20120523
  5. PLACEBO [Suspect]
     Indication: TYPE 2 DIABETES MELLITUS
     Dates: start: 20101109
  6. COUMADIN [Suspect]
  7. ASPIRIN [Suspect]
  8. NIACIN [Suspect]
  9. ADP ANTAGONIST [Concomitant]
  10. BETA BLOCKERS [Concomitant]
  11. STATIN [Concomitant]
  12. FIBRIC ACID [Concomitant]
  13. ANGIOTENSIN RECEPTOR BLOCKERS [Concomitant]
  14. CALCIUM ANTAGONIST [Concomitant]
  15. DIURETICS [Concomitant]
  16. NITRATES [Concomitant]
  17. ANTICOAGULANTS [Concomitant]
  18. ANTI-ARRHYTHMIC AGENTS [Concomitant]

REACTIONS (1)
  - Upper gastrointestinal haemorrhage [Unknown]
